FAERS Safety Report 8480126-6 (Version None)
Quarter: 2012Q2

REPORT INFORMATION
  Report Type: 
  Country: None (occurrence: None)
  Receive Date: 20120629
  Receipt Date: 20120628
  Transmission Date: 20120825
  Serious: Yes (Death, Hospitalization)
  Sender: FDA-Public Use
  Company Number: DE-ROCHE-1021276

PATIENT
  Age: 52 Year
  Sex: Male
  Weight: 59 kg

DRUGS (6)
  1. VEMURAFENIB [Suspect]
     Indication: METASTATIC MALIGNANT MELANOMA
     Dosage: LAST DOSE PRIRO TO SAE 01 JAN 2012
     Route: 048
     Dates: start: 20111121, end: 20111208
  2. TORSEMIDE [Concomitant]
     Dates: start: 20110101
  3. VEMURAFENIB [Suspect]
     Route: 048
     Dates: start: 20111215, end: 20120102
  4. PANTOPRAZOLE [Concomitant]
     Dates: start: 20100101
  5. KEPPRA [Concomitant]
     Dates: start: 20111028
  6. DEXAMETHASONE [Concomitant]
     Dates: start: 20110801

REACTIONS (2)
  - ERYSIPELAS [None]
  - CELLULITIS [None]
